FAERS Safety Report 4664360-9 (Version None)
Quarter: 2005Q2

REPORT INFORMATION
  Report Type: 
  Country: None (occurrence: None)
  Receive Date: 20050516
  Receipt Date: 20050516
  Transmission Date: 20051028
  Serious: No
  Sender: FDA-Public Use
  Company Number: None

PATIENT
  Age: 56 Year
  Sex: Male
  Weight: 73.2559 kg

DRUGS (12)
  1. INVIRASE [Suspect]
     Indication: HIV INFECTION
     Dosage: 1000MG BID PO
     Route: 048
     Dates: start: 20050224, end: 20050420
  2. RITONAVIR [Suspect]
     Indication: HIV INFECTION
     Dosage: 100MG BID PO
     Route: 048
     Dates: start: 20050224, end: 20050420
  3. ZERIT [Suspect]
     Indication: HIV INFECTION
     Dosage: 40MG BID PO
     Route: 048
     Dates: start: 20050224, end: 20050420
  4. TENOFOVIR [Suspect]
     Indication: HIV INFECTION
     Dosage: 300 MG QD PO
     Route: 048
     Dates: start: 20050224, end: 20050420
  5. CLINDAMYCIN [Concomitant]
  6. LEUCOVORIN CALCIUM [Concomitant]
  7. BACTRIM DS [Concomitant]
  8. PYRIMETHAMIME [Concomitant]
  9. AZITHROMYCIN [Concomitant]
  10. ACYCLOVIR [Concomitant]
  11. ASPIRIN [Concomitant]
  12. ITRACONAZOLE [Concomitant]

REACTIONS (10)
  - BLOOD CREATININE INCREASED [None]
  - DRUG INTERACTION [None]
  - DRUG LEVEL INCREASED [None]
  - ELECTROCARDIOGRAM QT CORRECTED INTERVAL PROLONGED [None]
  - ELECTROCARDIOGRAM QT PROLONGED [None]
  - HYPOAESTHESIA [None]
  - HYPOKALAEMIA [None]
  - MUSCLE CONTRACTIONS INVOLUNTARY [None]
  - SINUS BRADYCARDIA [None]
  - TREMOR [None]
